FAERS Safety Report 9680717 (Version 1)
Quarter: 2013Q4

REPORT INFORMATION
  Report Type: Spontaneous
  Country: US (occurrence: US)
  Receive Date: 20131111
  Receipt Date: 20131111
  Transmission Date: 20140711
  Serious: Yes (Hospitalization)
  Sender: FDA-Public Use
  Company Number: US-BAYER-2013-133418

PATIENT
  Age: 8 Month
  Sex: Male

DRUGS (8)
  1. BAYER GENUINE ASPIRIN ORIGINAL STRENGTH [Suspect]
     Indication: KAWASAKI^S DISEASE
     Dosage: 100 MG/KG/24HOURS
  2. BAYER GENUINE ASPIRIN ORIGINAL STRENGTH [Suspect]
     Indication: KAWASAKI^S DISEASE
     Dosage: LOW DOSE
  3. INFLIXIMAB [Suspect]
     Indication: KAWASAKI^S DISEASE
     Dosage: 100 MG, UNK
     Route: 042
  4. RANITIDINE [Suspect]
  5. LOVENOX [Concomitant]
  6. INDERAL [Concomitant]
  7. IMMUNOGLOBULIN [Concomitant]
  8. METHYLPREDNISOLONE [Concomitant]

REACTIONS (7)
  - Eosinophilia [Recovered/Resolved]
  - Pyrexia [Recovered/Resolved]
  - Coronary artery aneurysm [None]
  - Pericardial effusion [None]
  - Cardiac tamponade [None]
  - Off label use [None]
  - Off label use [None]
